FAERS Safety Report 11597770 (Version 1)
Quarter: 2015Q3

REPORT INFORMATION
  Report Type: Spontaneous
  Country: US (occurrence: US)
  Receive Date: 20150916
  Receipt Date: 20150916
  Transmission Date: 20151125
  Serious: No
  Sender: FDA-Public Use
  Company Number: US-ELI_LILLY_AND_COMPANY-US200801001533

PATIENT
  Age: 72 Year
  Sex: Female

DRUGS (7)
  1. PREVACID [Concomitant]
     Active Substance: LANSOPRAZOLE
  2. CALCIUM [Concomitant]
     Active Substance: CALCIUM
  3. FORTEO [Suspect]
     Active Substance: TERIPARATIDE
     Dates: start: 200706, end: 200712
  4. LIBRAX [Concomitant]
     Active Substance: CHLORDIAZEPOXIDE HYDROCHLORIDE\CLIDINIUM BROMIDE
  5. FORTEO [Suspect]
     Active Substance: TERIPARATIDE
     Dates: start: 20080107
  6. TRENTAL [Concomitant]
     Active Substance: PENTOXIFYLLINE
  7. ASTELIN [Concomitant]
     Active Substance: AZELASTINE HYDROCHLORIDE

REACTIONS (9)
  - Haematochezia [Recovered/Resolved]
  - Palpitations [Not Recovered/Not Resolved]
  - Nausea [Recovered/Resolved]
  - Large intestine polyp [Recovered/Resolved]
  - Irritability [Not Recovered/Not Resolved]
  - Nephrolithiasis [Recovered/Resolved]
  - Blood urine present [Recovered/Resolved]
  - Malaise [Recovered/Resolved]
  - Insomnia [Unknown]

NARRATIVE: CASE EVENT DATE: 2007
